FAERS Safety Report 25555191 (Version 1)
Quarter: 2025Q3

REPORT INFORMATION
  Report Type: Spontaneous
  Country: EU (occurrence: EU)
  Receive Date: 20250715
  Receipt Date: 20250715
  Transmission Date: 20251020
  Serious: Yes (Other)
  Sender: MYLAN
  Company Number: EU-HIKMA PHARMACEUTICALS USA INC.-IT-H14001-25-07698

PATIENT
  Age: 14 Month
  Sex: Female

DRUGS (8)
  1. GEMCITABINE [Suspect]
     Active Substance: GEMCITABINE
     Indication: Choroid plexus carcinoma
     Dosage: 1000 MG/SQ. METER, Q28D(33.3 MG/KG IN THE CASE OF WEIGHT LESS THAN 10 KG, ON DAY ONE OF EACH CYCLE
  2. GEMCITABINE [Suspect]
     Active Substance: GEMCITABINE
     Dosage: 1000 MG/SQ. METER, Q28D(33.3 MG/KG IN THE CASE OF WEIGHT LESS THAN 10 KG, ON DAY ONE OF EACH CYCLE
     Route: 065
  3. GEMCITABINE [Suspect]
     Active Substance: GEMCITABINE
     Dosage: 1000 MG/SQ. METER, Q28D(33.3 MG/KG IN THE CASE OF WEIGHT LESS THAN 10 KG, ON DAY ONE OF EACH CYCLE
     Route: 065
  4. GEMCITABINE [Suspect]
     Active Substance: GEMCITABINE
     Dosage: 1000 MG/SQ. METER, Q28D(33.3 MG/KG IN THE CASE OF WEIGHT LESS THAN 10 KG, ON DAY ONE OF EACH CYCLE
  5. OXALIPLATIN [Suspect]
     Active Substance: OXALIPLATIN
     Indication: Choroid plexus carcinoma
     Dosage: 100 MG/SQ. METER, Q28D (3.3 MG/KG IN THE CASE OF WEIGHT LESS THAN 10 KG, ON DAY ONE OF EACH CYCLE
  6. OXALIPLATIN [Suspect]
     Active Substance: OXALIPLATIN
     Dosage: 100 MG/SQ. METER, Q28D (3.3 MG/KG IN THE CASE OF WEIGHT LESS THAN 10 KG, ON DAY ONE OF EACH CYCLE
     Route: 065
  7. OXALIPLATIN [Suspect]
     Active Substance: OXALIPLATIN
     Dosage: 100 MG/SQ. METER, Q28D (3.3 MG/KG IN THE CASE OF WEIGHT LESS THAN 10 KG, ON DAY ONE OF EACH CYCLE
     Route: 065
  8. OXALIPLATIN [Suspect]
     Active Substance: OXALIPLATIN
     Dosage: 100 MG/SQ. METER, Q28D (3.3 MG/KG IN THE CASE OF WEIGHT LESS THAN 10 KG, ON DAY ONE OF EACH CYCLE

REACTIONS (2)
  - Disease progression [Unknown]
  - Therapeutic product effect incomplete [Unknown]
